FAERS Safety Report 20806009 (Version 2)
Quarter: 2022Q3

REPORT INFORMATION
  Report Type: Spontaneous
  Country: US (occurrence: US)
  Receive Date: 20220510
  Receipt Date: 20220805
  Transmission Date: 20221027
  Serious: No
  Sender: FDA-Public Use
  Company Number: US-ALLERGAN-2214191US

PATIENT
  Sex: Male

DRUGS (1)
  1. VUITY [Suspect]
     Active Substance: PILOCARPINE HYDROCHLORIDE
     Indication: Product used for unknown indication
     Dosage: 1 DROP BOTH EYES ONLY ONCE

REACTIONS (3)
  - Eye injury [Not Recovered/Not Resolved]
  - Night blindness [Not Recovered/Not Resolved]
  - Vision blurred [Not Recovered/Not Resolved]
